FAERS Safety Report 5854716-0 (Version None)
Quarter: 2008Q3

REPORT INFORMATION
  Report Type: 
  Country: None (occurrence: None)
  Receive Date: 20080822
  Receipt Date: 20080812
  Transmission Date: 20090109
  Serious: Yes (Death, Hospitalization)
  Sender: FDA-Public Use
  Company Number: AU-GENENTECH-266223

PATIENT
  Sex: Male

DRUGS (1)
  1. LUCENTIS [Suspect]
     Indication: MACULAR DEGENERATION
     Dosage: UNK
     Dates: start: 20071212, end: 20080111

REACTIONS (2)
  - DEATH [None]
  - GANGRENE [None]
